FAERS Safety Report 17194334 (Version 5)
Quarter: 2022Q3

REPORT INFORMATION
  Report Type: Spontaneous
  Country: US (occurrence: None)
  Receive Date: 20191224
  Receipt Date: 20220806
  Transmission Date: 20221027
  Serious: Yes (Hospitalization, Other)
  Sender: FDA-Public Use
  Company Number: 2019SF84362

PATIENT
  Age: 52 Year
  Sex: Male
  Weight: 101.6 kg

DRUGS (113)
  1. FARXIGA [Suspect]
     Active Substance: DAPAGLIFLOZIN PROPANEDIOL
     Indication: Type 2 diabetes mellitus
     Route: 048
     Dates: start: 20170620, end: 201712
  2. FARXIGA [Suspect]
     Active Substance: DAPAGLIFLOZIN PROPANEDIOL
     Indication: Weight decreased
     Route: 048
     Dates: start: 20170620, end: 201712
  3. FARXIGA [Suspect]
     Active Substance: DAPAGLIFLOZIN PROPANEDIOL
     Indication: Blood pressure decreased
     Route: 048
     Dates: start: 20170620, end: 201712
  4. FARXIGA [Suspect]
     Active Substance: DAPAGLIFLOZIN PROPANEDIOL
     Indication: Type 2 diabetes mellitus
     Dosage: 5.0MG UNKNOWN
     Route: 048
     Dates: start: 20170620
  5. FARXIGA [Suspect]
     Active Substance: DAPAGLIFLOZIN PROPANEDIOL
     Indication: Weight decreased
     Dosage: 5.0MG UNKNOWN
     Route: 048
     Dates: start: 20170620
  6. FARXIGA [Suspect]
     Active Substance: DAPAGLIFLOZIN PROPANEDIOL
     Indication: Blood pressure decreased
     Dosage: 5.0MG UNKNOWN
     Route: 048
     Dates: start: 20170620
  7. FARXIGA [Suspect]
     Active Substance: DAPAGLIFLOZIN PROPANEDIOL
     Indication: Type 2 diabetes mellitus
     Dosage: 5.0MG UNKNOWN
     Route: 048
     Dates: start: 20170827
  8. FARXIGA [Suspect]
     Active Substance: DAPAGLIFLOZIN PROPANEDIOL
     Indication: Weight decreased
     Dosage: 5.0MG UNKNOWN
     Route: 048
     Dates: start: 20170827
  9. FARXIGA [Suspect]
     Active Substance: DAPAGLIFLOZIN PROPANEDIOL
     Indication: Blood pressure decreased
     Dosage: 5.0MG UNKNOWN
     Route: 048
     Dates: start: 20170827
  10. FARXIGA [Suspect]
     Active Substance: DAPAGLIFLOZIN PROPANEDIOL
     Indication: Type 2 diabetes mellitus
     Dosage: 5.0MG UNKNOWN
     Route: 048
     Dates: start: 20170927
  11. FARXIGA [Suspect]
     Active Substance: DAPAGLIFLOZIN PROPANEDIOL
     Indication: Weight decreased
     Dosage: 5.0MG UNKNOWN
     Route: 048
     Dates: start: 20170927
  12. FARXIGA [Suspect]
     Active Substance: DAPAGLIFLOZIN PROPANEDIOL
     Indication: Blood pressure decreased
     Dosage: 5.0MG UNKNOWN
     Route: 048
     Dates: start: 20170927
  13. FARXIGA [Suspect]
     Active Substance: DAPAGLIFLOZIN PROPANEDIOL
     Indication: Type 2 diabetes mellitus
     Dosage: 5.0MG UNKNOWN
     Route: 048
     Dates: start: 20171126
  14. FARXIGA [Suspect]
     Active Substance: DAPAGLIFLOZIN PROPANEDIOL
     Indication: Weight decreased
     Dosage: 5.0MG UNKNOWN
     Route: 048
     Dates: start: 20171126
  15. FARXIGA [Suspect]
     Active Substance: DAPAGLIFLOZIN PROPANEDIOL
     Indication: Blood pressure decreased
     Dosage: 5.0MG UNKNOWN
     Route: 048
     Dates: start: 20171126
  16. FARXIGA [Suspect]
     Active Substance: DAPAGLIFLOZIN PROPANEDIOL
     Indication: Type 2 diabetes mellitus
     Dosage: UNKNOWN
     Route: 048
     Dates: start: 20171207
  17. FARXIGA [Suspect]
     Active Substance: DAPAGLIFLOZIN PROPANEDIOL
     Indication: Weight decreased
     Dosage: UNKNOWN
     Route: 048
     Dates: start: 20171207
  18. FARXIGA [Suspect]
     Active Substance: DAPAGLIFLOZIN PROPANEDIOL
     Indication: Blood pressure decreased
     Dosage: UNKNOWN
     Route: 048
     Dates: start: 20171207
  19. FARXIGA [Suspect]
     Active Substance: DAPAGLIFLOZIN PROPANEDIOL
     Indication: Type 2 diabetes mellitus
     Dosage: UNKNOWN
     Route: 048
     Dates: start: 201705, end: 201712
  20. FARXIGA [Suspect]
     Active Substance: DAPAGLIFLOZIN PROPANEDIOL
     Indication: Weight decreased
     Dosage: UNKNOWN
     Route: 048
     Dates: start: 201705, end: 201712
  21. FARXIGA [Suspect]
     Active Substance: DAPAGLIFLOZIN PROPANEDIOL
     Indication: Blood pressure decreased
     Dosage: UNKNOWN
     Route: 048
     Dates: start: 201705, end: 201712
  22. DICLOFENAC SODIUM [Concomitant]
     Active Substance: DICLOFENAC SODIUM
     Indication: Pain
     Dates: start: 20171207
  23. FISH OIL [Concomitant]
     Active Substance: FISH OIL
     Indication: Cardiac disorder
     Dates: start: 20171207
  24. LEVAQUIN [Concomitant]
     Active Substance: LEVOFLOXACIN
  25. LISINOPRIL [Concomitant]
     Active Substance: LISINOPRIL
     Indication: Hypertension
     Dates: start: 20171207
  26. LORATADINE [Concomitant]
     Active Substance: LORATADINE
     Indication: Hypersensitivity
     Dates: start: 20171207
  27. LORAZEPAM [Concomitant]
     Active Substance: LORAZEPAM
     Indication: Anxiety
     Dates: start: 20171207
  28. METFORMIN HYDROCHLORIDE [Concomitant]
     Active Substance: METFORMIN HYDROCHLORIDE
     Indication: Diabetes mellitus
     Dates: start: 20171207
  29. METRONIDAZOLE [Concomitant]
     Active Substance: METRONIDAZOLE
     Indication: Antibiotic therapy
     Dates: start: 20171207
  30. VITAMIN B12 [Concomitant]
     Active Substance: CYANOCOBALAMIN
     Indication: Vitamin supplementation
     Dates: start: 20171207
  31. VITAMIN C [Concomitant]
     Active Substance: ASCORBIC ACID
     Indication: Vitamin supplementation
     Dates: start: 20171207
  32. NORCO [Concomitant]
     Active Substance: ACETAMINOPHEN\HYDROCODONE BITARTRATE
     Indication: Pain
  33. MIRALAX [Concomitant]
     Active Substance: POLYETHYLENE GLYCOL 3350
  34. FENOFIBRATE [Concomitant]
     Active Substance: FENOFIBRATE
  35. HYDROCHLOROTHIAZIDE [Concomitant]
     Active Substance: HYDROCHLOROTHIAZIDE
  36. PERCOCET [Concomitant]
     Active Substance: ACETAMINOPHEN\OXYCODONE HYDROCHLORIDE
  37. LIDOCAINE [Concomitant]
     Active Substance: LIDOCAINE
  38. MIDAZOLAM [Concomitant]
     Active Substance: MIDAZOLAM
  39. METOCLOPRAMIDE [Concomitant]
     Active Substance: METOCLOPRAMIDE
  40. ONDANSETRON [Concomitant]
     Active Substance: ONDANSETRON
  41. CEFAZOLIN [Concomitant]
     Active Substance: CEFAZOLIN
  42. DILAUDID [Concomitant]
     Active Substance: HYDROMORPHONE HYDROCHLORIDE
  43. PHENYLEPHRINE [Concomitant]
     Active Substance: PHENYLEPHRINE HYDROCHLORIDE
  44. SODIUM CHLORIDE [Concomitant]
     Active Substance: SODIUM CHLORIDE
  45. SEVOFLURANE [Concomitant]
     Active Substance: SEVOFLURANE
  46. TORADOL [Concomitant]
     Active Substance: KETOROLAC TROMETHAMINE
  47. DEXAMETHASONE [Concomitant]
     Active Substance: DEXAMETHASONE
  48. SIMVASTATIN [Concomitant]
     Active Substance: SIMVASTATIN
  49. AMOXICILLIN\CLAVULANATE POTASSIUM [Concomitant]
     Active Substance: AMOXICILLIN\CLAVULANATE POTASSIUM
  50. CLONIDINE [Concomitant]
     Active Substance: CLONIDINE
  51. VIAGRA [Concomitant]
     Active Substance: SILDENAFIL CITRATE
  52. AZITHROMYCIN [Concomitant]
     Active Substance: AZITHROMYCIN
  53. CEPHALEXIN [Concomitant]
     Active Substance: CEPHALEXIN
  54. FLUTICASONE [Concomitant]
     Active Substance: FLUTICASONE
  55. TRIAMCINOLONE [Concomitant]
     Active Substance: TRIAMCINOLONE
  56. CRESTOR [Concomitant]
     Active Substance: ROSUVASTATIN CALCIUM
  57. CYCLOBENZAPRINE [Concomitant]
     Active Substance: CYCLOBENZAPRINE
  58. METHYLPREDNISOLONE [Concomitant]
     Active Substance: METHYLPREDNISOLONE
  59. NAPROXEN [Concomitant]
     Active Substance: NAPROXEN
  60. TRAMADOL [Concomitant]
     Active Substance: TRAMADOL
  61. BREVIBLOC [Concomitant]
     Active Substance: ESMOLOL HYDROCHLORIDE
  62. ZOSYN [Concomitant]
     Active Substance: PIPERACILLIN SODIUM\TAZOBACTAM SODIUM
  63. NICODERM CQ [Concomitant]
     Active Substance: NICOTINE
  64. HEPARIN [Concomitant]
     Active Substance: HEPARIN SODIUM
  65. VOLTAREN [Concomitant]
     Active Substance: DICLOFENAC SODIUM
  66. BENZONATATE [Concomitant]
     Active Substance: BENZONATATE
  67. AMOXICILLIN [Concomitant]
     Active Substance: AMOXICILLIN
  68. NASONEX [Concomitant]
     Active Substance: MOMETASONE FUROATE
  69. ANTIPYRINE -BENZOCAINE [Concomitant]
  70. NEOMYCIN-POLYMYXIN [Concomitant]
  71. IBUPROFEN [Concomitant]
     Active Substance: IBUPROFEN
  72. PROMETHAZINE [Concomitant]
     Active Substance: PROMETHAZINE HYDROCHLORIDE
  73. INVOKANA [Concomitant]
     Active Substance: CANAGLIFLOZIN
  74. SULFAMETHOXAZOLE [Concomitant]
     Active Substance: SULFAMETHOXAZOLE
  75. HUMALOG [Concomitant]
     Active Substance: INSULIN LISPRO
  76. JANUVIA [Concomitant]
     Active Substance: SITAGLIPTIN PHOSPHATE
  77. SILDENAFIL [Concomitant]
     Active Substance: SILDENAFIL
  78. DOXYCYCLINE HYCLATE [Concomitant]
     Active Substance: DOXYCYCLINE HYCLATE
  79. BYSTOLIC [Concomitant]
     Active Substance: NEBIVOLOL HYDROCHLORIDE
  80. GEMFIBROZIL [Concomitant]
     Active Substance: GEMFIBROZIL
  81. MUPIROCIN [Concomitant]
     Active Substance: MUPIROCIN
  82. HYDROGEN PEROXIDE [Concomitant]
     Active Substance: HYDROGEN PEROXIDE
  83. MARCAINE [Concomitant]
     Active Substance: BUPIVACAINE HYDROCHLORIDE
  84. XYLOCAINE/EPINEPHRINE [Concomitant]
  85. FLAGYL [Concomitant]
     Active Substance: METRONIDAZOLE\METRONIDAZOLE HYDROCHLORIDE
  86. GARAMYCIN [Concomitant]
     Active Substance: GENTAMICIN SULFATE
  87. VANCOMYCIN [Concomitant]
     Active Substance: VANCOMYCIN
  88. ADENOSINE [Concomitant]
     Active Substance: ADENOSINE
  89. PROTHROMBIN [Concomitant]
     Active Substance: PROTHROMBIN
  90. NITROGLYCERIN [Concomitant]
     Active Substance: NITROGLYCERIN
  91. ISOVUE [Concomitant]
     Active Substance: IOPAMIDOL
  92. LEXISCAN [Concomitant]
     Active Substance: REGADENOSON
  93. TRADJENTA [Concomitant]
     Active Substance: LINAGLIPTIN
  94. GLUCOPHAGE [Concomitant]
     Active Substance: METFORMIN HYDROCHLORIDE
  95. TYLENOL [Concomitant]
     Active Substance: ACETAMINOPHEN
  96. DIPRIVAN [Concomitant]
     Active Substance: PROPOFOL
  97. ZEMURON [Concomitant]
     Active Substance: ROCURONIUM BROMIDE
  98. PROSTIGMINE [Concomitant]
  99. ROBINUL [Concomitant]
     Active Substance: GLYCOPYRROLATE
  100. SUBLIMAZE [Concomitant]
     Active Substance: FENTANYL CITRATE
  101. VERSED [Concomitant]
     Active Substance: MIDAZOLAM HYDROCHLORIDE
  102. POTASSIUM PHOSPHATE [Concomitant]
     Active Substance: POTASSIUM PHOSPHATE
  103. ALBUMINAR [Concomitant]
     Active Substance: ALBUMIN HUMAN
  104. MAXIPIME [Concomitant]
     Active Substance: CEFEPIME HYDROCHLORIDE
  105. TOPROL XL [Concomitant]
     Active Substance: METOPROLOL SUCCINATE
  106. ANCEF [Concomitant]
     Active Substance: CEFAZOLIN SODIUM
  107. MAGNESIUM [Concomitant]
     Active Substance: MAGNESIUM
  108. VITAMIN B12 [Concomitant]
     Active Substance: CYANOCOBALAMIN
  109. VITAMIN E [Concomitant]
     Active Substance: .ALPHA.-TOCOPHEROL
  110. AMLODIPINE [Concomitant]
     Active Substance: AMLODIPINE BESYLATE
     Dates: start: 20200123
  111. LIPITOR [Concomitant]
     Active Substance: ATORVASTATIN CALCIUM
     Dates: start: 20200219
  112. AUGMENTIN [Concomitant]
     Active Substance: AMOXICILLIN\CLAVULANATE POTASSIUM
     Dates: start: 20200123
  113. LITHIUM [Concomitant]
     Active Substance: LITHIUM

REACTIONS (12)
  - Fournier^s gangrene [Unknown]
  - Necrotising fasciitis [Unknown]
  - Scrotal cyst [Unknown]
  - Testicular pain [Unknown]
  - Scrotal pain [Unknown]
  - Scrotal swelling [Unknown]
  - Groin pain [Unknown]
  - Genital abscess [Unknown]
  - Groin abscess [Unknown]
  - Cellulitis [Unknown]
  - Gas gangrene [Unknown]
  - Tooth abscess [Unknown]

NARRATIVE: CASE EVENT DATE: 20170101
